FAERS Safety Report 8838067 (Version 2)
Quarter: 2013Q1

REPORT INFORMATION
  Report Type: Report from Study
  Country: US (occurrence: US)
  Receive Date: 20121012
  Receipt Date: 20130220
  Transmission Date: 20140127
  Serious: Yes (Other)
  Sender: FDA-Public Use
  Company Number: US-ABBOTT-12P-163-0991770-00

PATIENT
  Age: 17 Year
  Sex: Female

DRUGS (5)
  1. HUMIRA [Suspect]
     Indication: COGAN^S SYNDROME
     Dates: start: 20120823
  2. HUMIRA [Suspect]
     Dates: start: 20120928
  3. ZOFRAN [Concomitant]
     Indication: NAUSEA
  4. CELEBREX [Concomitant]
     Indication: PAIN
  5. NOVO-PREDNISONE [Concomitant]
     Indication: PRODUCT USED FOR UNKNOWN INDICATION
     Dates: start: 20120928

REACTIONS (4)
  - Nuclear magnetic resonance imaging abnormal [Not Recovered/Not Resolved]
  - Inflammation [Unknown]
  - Headache [Unknown]
  - Off label use [Unknown]
